FAERS Safety Report 20834241 (Version 3)
Quarter: 2022Q2

REPORT INFORMATION
  Report Type: Spontaneous
  Country: CH (occurrence: CH)
  Receive Date: 20220516
  Receipt Date: 20220520
  Transmission Date: 20220721
  Serious: Yes (Death, Life-Threatening)
  Sender: FDA-Public Use
  Company Number: CH-ELI_LILLY_AND_COMPANY-CH202205005042

PATIENT
  Age: 82 Year
  Sex: Male
  Weight: 82 kg

DRUGS (4)
  1. CYRAMZA [Suspect]
     Active Substance: RAMUCIRUMAB
     Indication: Disease progression
     Dosage: 660 MG, CYCLICAL
     Route: 042
     Dates: start: 20220427
  2. IRINOTECAN [IRINOTECAN HYDROCHLORIDE TRIHYDRA [Concomitant]
     Indication: Malignant neoplasm progression
     Dosage: 340 MG
     Dates: start: 20220427
  3. LEUCOVORIN CALCIUM [Concomitant]
     Active Substance: LEUCOVORIN CALCIUM
     Indication: Malignant neoplasm progression
     Dosage: 750 MG
  4. FLUOROURACIL [Concomitant]
     Active Substance: FLUOROURACIL
     Indication: Malignant neoplasm progression
     Dosage: UNK, OTHER (FLUOROURACIL BOLUS 750MG AND FLUOROURACIL PUMPE 2CL 4500MG)

REACTIONS (2)
  - Myocardial infarction [Fatal]
  - Pulmonary oedema [Unknown]
